FAERS Safety Report 10196931 (Version 1)
Quarter: 2014Q2

REPORT INFORMATION
  Report Type: Spontaneous
  Country: IT (occurrence: IT)
  Receive Date: 20140527
  Receipt Date: 20140527
  Transmission Date: 20141212
  Serious: Yes (Other)
  Sender: FDA-Public Use
  Company Number: IT-SA-2014SA063038

PATIENT
  Age: 73 Year
  Sex: Male
  Weight: 86 kg

DRUGS (7)
  1. FERLIXIT [Suspect]
     Indication: IRON DEFICIENCY ANAEMIA
     Dosage: SOLUTION FOR ORAL AND INTRAVENOUS USE
     Route: 042
     Dates: start: 20140407, end: 20140408
  2. BISOPROLOL HEMIFUMARATE [Concomitant]
     Indication: CONGESTIVE CARDIOMYOPATHY
     Route: 048
     Dates: start: 20120801, end: 20140408
  3. AMIODARONE HYDROCHLORIDE [Concomitant]
     Indication: MYOCARDIAL ISCHAEMIA
     Route: 048
     Dates: start: 20120801, end: 20140408
  4. PANTORC [Concomitant]
     Dosage: STRENGTH: 20 MG
     Route: 048
     Dates: start: 20120801, end: 20140408
  5. LASIX [Concomitant]
     Dosage: STRENGTH: 25 MG
     Dates: start: 20120801, end: 20140408
  6. NOVORAPID [Concomitant]
     Indication: TYPE 2 DIABETES MELLITUS
     Dosage: STRENGTH: 100 U/ML
     Route: 058
     Dates: start: 20110101, end: 20140408
  7. TORVAST [Concomitant]
     Indication: DYSLIPIDAEMIA
     Dosage: STRENGTH: 10 MG
     Route: 048
     Dates: start: 20130201, end: 20140408

REACTIONS (5)
  - Hyperpyrexia [Recovered/Resolved]
  - Chills [Recovered/Resolved]
  - Nausea [Recovered/Resolved]
  - Vomiting [Recovered/Resolved]
  - Orthostatic hypotension [Recovered/Resolved]
